FAERS Safety Report 10663235 (Version 7)
Quarter: 2022Q3

REPORT INFORMATION
  Report Type: Report from Study
  Country: AR (occurrence: AR)
  Receive Date: 20141218
  Receipt Date: 20220718
  Transmission Date: 20221026
  Serious: Yes (Hospitalization, Other)
  Sender: FDA-Public Use
  Company Number: PHHY2014AR153945

PATIENT
  Age: 48 Year
  Sex: Female

DRUGS (4)
  1. GILENYA [Suspect]
     Active Substance: FINGOLIMOD HYDROCHLORIDE
     Indication: Multiple sclerosis
     Dosage: 0.5 MG, QD
     Route: 048
     Dates: start: 2012
  2. GILENYA [Suspect]
     Active Substance: FINGOLIMOD HYDROCHLORIDE
     Dosage: 0.5 MG, QD
     Route: 058
     Dates: start: 20140502, end: 20140821
  3. GILENYA [Suspect]
     Active Substance: FINGOLIMOD HYDROCHLORIDE
     Dosage: 0.5 MG, QD
     Route: 048
     Dates: start: 20140921
  4. AMLODIPINE [Concomitant]
     Active Substance: AMLODIPINE BESYLATE
     Indication: Hypertension
     Dosage: UNK
     Route: 065

REACTIONS (18)
  - Blood pressure fluctuation [Recovering/Resolving]
  - Bradycardia [Recovering/Resolving]
  - COVID-19 pneumonia [Unknown]
  - Psychogenic seizure [Unknown]
  - Emotional distress [Recovering/Resolving]
  - Depressed mood [Recovering/Resolving]
  - Amnesia [Recovering/Resolving]
  - Tremor [Recovering/Resolving]
  - Gait disturbance [Unknown]
  - Encephalopathy [Recovering/Resolving]
  - Confusional state [Recovering/Resolving]
  - Myoclonus [Recovering/Resolving]
  - Asthenia [Unknown]
  - Urinary tract infection [Recovering/Resolving]
  - Immunodeficiency [Unknown]
  - Central nervous system lesion [Unknown]
  - Limb discomfort [Unknown]
  - Incorrect route of product administration [Unknown]

NARRATIVE: CASE EVENT DATE: 20131101
